FAERS Safety Report 10399792 (Version 11)
Quarter: 2015Q1

REPORT INFORMATION
  Report Type: Report from Study
  Country: US (occurrence: US)
  Receive Date: 20140821
  Receipt Date: 20150225
  Transmission Date: 20150720
  Serious: Yes (Hospitalization, Other)
  Sender: FDA-Public Use
  Company Number: US-SA-2014SA015150

PATIENT
  Age: 34 Year
  Sex: Female
  Weight: 67.58 kg

DRUGS (5)
  1. AUBAGIO [Suspect]
     Active Substance: TERIFLUNOMIDE
     Indication: MULTIPLE SCLEROSIS
     Route: 048
  2. AUBAGIO [Suspect]
     Active Substance: TERIFLUNOMIDE
     Indication: MULTIPLE SCLEROSIS
     Route: 048
     Dates: start: 20141020
  3. AUBAGIO [Suspect]
     Active Substance: TERIFLUNOMIDE
     Indication: MULTIPLE SCLEROSIS
     Route: 048
     Dates: start: 20150107
  4. AUBAGIO [Suspect]
     Active Substance: TERIFLUNOMIDE
     Indication: MULTIPLE SCLEROSIS
     Dosage: TWO 7 MG TABS
     Route: 048
     Dates: start: 20140117, end: 20140217
  5. AUBAGIO [Suspect]
     Active Substance: TERIFLUNOMIDE
     Indication: MULTIPLE SCLEROSIS
     Dosage: STRENGTH 7 MG
     Route: 048

REACTIONS (16)
  - Malaise [Unknown]
  - Cough [Recovered/Resolved]
  - Nasopharyngitis [Unknown]
  - Hypoaesthesia [Unknown]
  - Fatigue [Not Recovered/Not Resolved]
  - Pain in extremity [Not Recovered/Not Resolved]
  - Blindness [Recovering/Resolving]
  - Unevaluable event [Unknown]
  - Diarrhoea [Unknown]
  - Memory impairment [Unknown]
  - Pruritus [Unknown]
  - Eye pain [Unknown]
  - Headache [Not Recovered/Not Resolved]
  - Depression [Unknown]
  - Eye disorder [Unknown]
  - Rhinorrhoea [Unknown]

NARRATIVE: CASE EVENT DATE: 20140203
